FAERS Safety Report 4615997-4 (Version None)
Quarter: 2005Q1

REPORT INFORMATION
  Report Type: 
  Country: None (occurrence: None)
  Receive Date: 20050323
  Receipt Date: 20050314
  Transmission Date: 20050727
  Serious: Yes (Other)
  Sender: FDA-Public Use
  Company Number: NSADSS2002036344

PATIENT
  Sex: Male

DRUGS (4)
  1. REMICADE [Suspect]
     Indication: SARCOIDOSIS
     Dosage: 4,8,12 WEEKS
     Route: 041
  2. REMICADE [Suspect]
     Dosage: 0 WEEK
     Route: 041
  3. PREDNISONE [Concomitant]
  4. METHOTREXATE [Concomitant]

REACTIONS (1)
  - IMMUNOBLASTIC LYMPHOMA [None]
